FAERS Safety Report 7731340-6 (Version None)
Quarter: 2011Q3

REPORT INFORMATION
  Report Type: 
  Country: None (occurrence: None)
  Receive Date: 20110906
  Receipt Date: 20110706
  Transmission Date: 20111222
  Serious: No
  Sender: FDA-Public Use
  Company Number: US-AMGEN-USASP2011034387

PATIENT
  Sex: Male

DRUGS (5)
  1. NEXAVAR [Concomitant]
     Dosage: 1 MG, Q12H
  2. METOPROLOL [Concomitant]
     Dosage: UNK UNK, QD
  3. FENTANYL-100 [Concomitant]
  4. XGEVA [Suspect]
     Indication: METASTASES TO BONE
     Dosage: UNK UNK, Q4WK
  5. NEXIUM [Concomitant]
     Dosage: UNK UNK, QD

REACTIONS (5)
  - THIRST [None]
  - SWELLING [None]
  - URINE OUTPUT DECREASED [None]
  - ASTHENIA [None]
  - DIZZINESS [None]
